FAERS Safety Report 6084822-X (Version None)
Quarter: 2009Q1

REPORT INFORMATION
  Report Type: 
  Country: None (occurrence: None)
  Receive Date: 20090218
  Receipt Date: 20090205
  Transmission Date: 20090719
  Serious: Yes (Hospitalization)
  Sender: FDA-Public Use
  Company Number: FABR-1000639

PATIENT
  Age: 66 Year
  Sex: Female
  Weight: 104 kg

DRUGS (3)
  1. FABRAZYME [Suspect]
     Indication: FABRY'S DISEASE
     Dosage: 105 NG, Q2W, INTRAVENOUS
     Route: 042
     Dates: start: 20030827
  2. FABRAZYME [Suspect]
     Indication: FABRY'S DISEASE
     Dosage: 105 NG, Q2W, INTRAVENOUS
     Route: 042
     Dates: start: 20080701
  3. COUMADIN [Suspect]

REACTIONS (1)
  - OVERDOSE [None]
